FAERS Safety Report 6212092-8 (Version None)
Quarter: 2009Q2

REPORT INFORMATION
  Report Type: 
  Country: None (occurrence: None)
  Receive Date: 20090602
  Receipt Date: 20090529
  Transmission Date: 20091009
  Serious: Yes (Other)
  Sender: FDA-Public Use
  Company Number: US-PFIZER INC-2009198226

PATIENT
  Sex: Female
  Weight: 64.41 kg

DRUGS (4)
  1. VERAPAMIL HCL [Suspect]
     Indication: VENTRICULAR TACHYCARDIA
     Dosage: UNK
  2. VASOTEC [Concomitant]
     Dosage: UNK
  3. PREMARIN [Concomitant]
     Dosage: UNK
  4. PLAVIX [Concomitant]
     Dosage: UNK

REACTIONS (4)
  - DEPRESSION [None]
  - HEADACHE [None]
  - INSOMNIA [None]
  - NIGHTMARE [None]
